FAERS Safety Report 11419054 (Version 2)
Quarter: 2015Q3

REPORT INFORMATION
  Report Type: Spontaneous
  Country: BR (occurrence: BR)
  Receive Date: 20150826
  Receipt Date: 20150901
  Transmission Date: 20151125
  Serious: Yes (Hospitalization, Other)
  Sender: FDA-Public Use
  Company Number: BR-ROCHE-1624821

PATIENT
  Age: 69 Year
  Sex: Female

DRUGS (5)
  1. DIOVAN [Concomitant]
     Active Substance: VALSARTAN
     Indication: HYPERTENSION
     Route: 065
  2. ROSUVASTATIN [Concomitant]
     Active Substance: ROSUVASTATIN
     Route: 065
  3. XENICAL [Suspect]
     Active Substance: ORLISTAT
     Indication: PRODUCT USED FOR UNKNOWN INDICATION
     Route: 065
     Dates: start: 1999
  4. DIAMICRON [Concomitant]
     Active Substance: GLICLAZIDE
     Indication: DIABETES MELLITUS
     Route: 065
  5. METFORMIN [Concomitant]
     Active Substance: METFORMIN HYDROCHLORIDE
     Indication: DIABETES MELLITUS
     Route: 065

REACTIONS (8)
  - Diabetes mellitus [Recovering/Resolving]
  - Hypercholesterolaemia [Recovering/Resolving]
  - Blood cholesterol increased [Recovering/Resolving]
  - Coronary artery disease [Unknown]
  - Steatorrhoea [Unknown]
  - Obesity [Recovering/Resolving]
  - Infarction [Unknown]
  - Dyslipidaemia [Recovering/Resolving]

NARRATIVE: CASE EVENT DATE: 201206
